FAERS Safety Report 21656013 (Version 1)
Quarter: 2022Q4

REPORT INFORMATION
  Report Type: Spontaneous
  Country: US (occurrence: US)
  Receive Date: 20221129
  Receipt Date: 20221129
  Transmission Date: 20230113
  Serious: No
  Sender: FDA-Public Use
  Company Number: US-TEVA-2022-US-2824955

PATIENT
  Age: 87 Year
  Sex: Male
  Weight: 94 kg

DRUGS (1)
  1. PIRFENIDONE [Suspect]
     Active Substance: PIRFENIDONE
     Indication: Idiopathic pulmonary fibrosis
     Dosage: 3 DOSAGE FORMS DAILY; ONE PILL THREE TIMES A DAY
     Route: 065
     Dates: start: 202209

REACTIONS (8)
  - Fatigue [Unknown]
  - Insomnia [Unknown]
  - Abdominal discomfort [Unknown]
  - Decreased appetite [Unknown]
  - Epistaxis [Unknown]
  - Dyspnoea [Unknown]
  - Malaise [Unknown]
  - Decreased activity [Unknown]

NARRATIVE: CASE EVENT DATE: 20220101
